FAERS Safety Report 5580464-0 (Version None)
Quarter: 2007Q4

REPORT INFORMATION
  Report Type: 
  Country: None (occurrence: None)
  Receive Date: 20071231
  Receipt Date: 20071231
  Transmission Date: 20080405
  Serious: Yes (Other)
  Sender: FDA-Public Use
  Company Number: None

PATIENT

DRUGS (1)
  1. PERMETHRIN [Suspect]
     Dates: start: 20071116, end: 20071218

REACTIONS (1)
  - NO ADVERSE EVENT [None]
